FAERS Safety Report 16391268 (Version 5)
Quarter: 2019Q3

REPORT INFORMATION
  Report Type: Spontaneous
  Country: BG (occurrence: BG)
  Receive Date: 20190604
  Receipt Date: 20190816
  Transmission Date: 20191004
  Serious: Yes (Hospitalization, Other)
  Sender: FDA-Public Use
  Company Number: PHHY2019BG121992

PATIENT
  Age: 53 Year
  Sex: Male

DRUGS (3)
  1. METAMIZOLE [Suspect]
     Active Substance: METAMIZOLE
     Indication: NASOPHARYNGITIS
     Dosage: UNK
     Route: 065
  2. PARACETAMOL [Suspect]
     Active Substance: ACETAMINOPHEN
     Indication: NASOPHARYNGITIS
     Dosage: UNK
     Route: 065
  3. IBUPROFEN. [Suspect]
     Active Substance: IBUPROFEN
     Indication: NASOPHARYNGITIS
     Dosage: UNK
     Route: 065

REACTIONS (24)
  - Muscle spasticity [Unknown]
  - Systemic lupus erythematosus [Recovered/Resolved]
  - Antinuclear antibody increased [Unknown]
  - Erythema multiforme [Recovered/Resolved]
  - Autoantibody positive [Unknown]
  - Target skin lesion [Recovered/Resolved]
  - Anaemia [Unknown]
  - Product use in unapproved indication [Unknown]
  - Hepatic enzyme increased [Unknown]
  - Complement factor C4 decreased [Unknown]
  - C-reactive protein increased [Unknown]
  - Skin erosion [Unknown]
  - Complement factor C3 decreased [Unknown]
  - Blister [Recovering/Resolving]
  - Skin necrosis [Recovering/Resolving]
  - Oedema [Unknown]
  - Red blood cell sedimentation rate increased [Unknown]
  - Mouth ulceration [Unknown]
  - Drug interaction [Unknown]
  - Muscle spasms [Unknown]
  - Erythema [Recovered/Resolved]
  - Double stranded DNA antibody [Unknown]
  - Skin degenerative disorder [Recovered/Resolved]
  - Enanthema [Unknown]
